FAERS Safety Report 4770818-4 (Version None)
Quarter: 2005Q3

REPORT INFORMATION
  Report Type: 
  Country: None (occurrence: None)
  Receive Date: 20050915
  Receipt Date: 20020925
  Transmission Date: 20060218
  Serious: Yes (Other)
  Sender: FDA-Public Use
  Company Number: US-GLAXOSMITHKLINE-A0381652A

PATIENT
  Sex: Male

DRUGS (3)
  1. PAXIL [Suspect]
     Indication: SOCIAL PHOBIA
     Route: 048
     Dates: start: 19991005, end: 19991029
  2. DEXEDRINE [Suspect]
     Dosage: 10MG PER DAY
     Route: 048
     Dates: start: 19981103
  3. RITALIN [Suspect]
     Indication: ATTENTION DEFICIT/HYPERACTIVITY DISORDER
     Dosage: 5MG VARIABLE DOSE
     Route: 048
     Dates: start: 19970609, end: 19981102

REACTIONS (13)
  - AGGRESSION [None]
  - AGITATION [None]
  - ANGER [None]
  - ANOREXIA [None]
  - ANXIETY [None]
  - EMOTIONAL DISORDER [None]
  - FATIGUE [None]
  - HALLUCINATION, AUDITORY [None]
  - HEAD BANGING [None]
  - INSOMNIA [None]
  - MENTAL DISORDER [None]
  - PSYCHOTIC DISORDER [None]
  - SOCIAL AVOIDANT BEHAVIOUR [None]
